FAERS Safety Report 6817994-7 (Version None)
Quarter: 2010Q3

REPORT INFORMATION
  Report Type: 
  Country: None (occurrence: None)
  Receive Date: 20100706
  Receipt Date: 20100629
  Transmission Date: 20110219
  Serious: Yes (Other)
  Sender: FDA-Public Use
  Company Number: GXKR2010DE07148

PATIENT
  Age: 38 Year
  Sex: Male

DRUGS (17)
  1. IBUHEXAL (NGX) [Suspect]
     Dosage: UNK
     Dates: start: 20070709, end: 20070709
  2. PREDNISOLON [Concomitant]
     Route: 042
  3. PREDNISOLONE [Concomitant]
     Route: 048
  4. AVELOX [Concomitant]
  5. EMSER SOLE [Concomitant]
  6. PROSPAN [Concomitant]
  7. THEOPHYLLINE [Concomitant]
  8. APSOMOL [Concomitant]
  9. SPIRIVA [Concomitant]
  10. ATROVENT [Concomitant]
  11. VIANI [Concomitant]
  12. OXAZEPAM [Concomitant]
  13. PARACETAMOL [Concomitant]
  14. COMBACTAM [Concomitant]
  15. PIPERACILLIN SODIUM [Concomitant]
  16. KINZALMONO [Concomitant]
  17. CLEXANE [Concomitant]

REACTIONS (3)
  - DYSPNOEA [None]
  - HYPERHIDROSIS [None]
  - PALLOR [None]
